FAERS Safety Report 7892947-9 (Version None)
Quarter: 2011Q4

REPORT INFORMATION
  Report Type: 
  Country: None (occurrence: None)
  Receive Date: 20111104
  Receipt Date: 20111027
  Transmission Date: 20120403
  Serious: Yes (Other)
  Sender: FDA-Public Use
  Company Number: US-US-EMD SERONO, INC.-7049847

PATIENT
  Sex: Female

DRUGS (2)
  1. REBIF [Suspect]
     Indication: MULTIPLE SCLEROSIS
     Route: 058
     Dates: start: 20100326, end: 20110226
  2. REBIF [Suspect]
     Route: 058

REACTIONS (10)
  - PARAESTHESIA [None]
  - HEART RATE INCREASED [None]
  - ABORTION INDUCED [None]
  - ABDOMINAL PAIN UPPER [None]
  - CENTRAL NERVOUS SYSTEM LESION [None]
  - NERVOUSNESS [None]
  - MITRAL VALVE PROLAPSE [None]
  - PAIN IN EXTREMITY [None]
  - PALPITATIONS [None]
  - FOETAL EXPOSURE DURING PREGNANCY [None]
